FAERS Safety Report 10102118 (Version 2)
Quarter: 2014Q2

REPORT INFORMATION
  Report Type: Spontaneous
  Country: FR (occurrence: FR)
  Receive Date: 20140424
  Receipt Date: 20140507
  Transmission Date: 20141212
  Serious: Yes (Hospitalization)
  Sender: FDA-Public Use
  Company Number: FR-ROCHE-1381929

PATIENT
  Age: 71 Year
  Sex: Female

DRUGS (26)
  1. ROACTEMRA [Suspect]
     Indication: RHEUMATOID ARTHRITIS
     Route: 041
     Dates: end: 20140313
  2. ROACTEMRA [Suspect]
     Dosage: 9TH INFUSION
     Route: 041
     Dates: end: 20140424
  3. CORTANCYL [Suspect]
     Indication: RHEUMATOID ARTHRITIS
     Route: 048
     Dates: end: 20140325
  4. CORTANCYL [Suspect]
     Route: 048
  5. METHOTREXATE [Suspect]
     Indication: PRODUCT USED FOR UNKNOWN INDICATION
     Route: 048
     Dates: end: 20140328
  6. EFFERALGAN [Concomitant]
  7. IMETH [Concomitant]
  8. SPECIAFOLDINE [Concomitant]
  9. LANSOPRAZOLE [Concomitant]
  10. NEBIVOLOL [Concomitant]
  11. FUROSEMIDE [Concomitant]
  12. RILMENIDINE [Concomitant]
  13. SEVIKAR [Concomitant]
  14. LYRICA [Concomitant]
  15. CACIT VITAMINE D3 [Concomitant]
  16. ACTONEL [Concomitant]
  17. OXYCONTIN LP [Concomitant]
  18. OXYNORM [Concomitant]
  19. PRAVASTATINE [Concomitant]
  20. KARDEGIC [Concomitant]
  21. LEVOTHYROX [Concomitant]
  22. LORAZEPAM [Concomitant]
  23. EFFEXOR [Concomitant]
  24. STEROGYL [Concomitant]
  25. URISPAS [Concomitant]
  26. LACTULOSE [Concomitant]

REACTIONS (3)
  - Lung infection [Recovered/Resolved]
  - Bacterial test positive [Recovered/Resolved]
  - Septic shock [Recovered/Resolved]
